FAERS Safety Report 19371799 (Version 7)
Quarter: 2021Q4

REPORT INFORMATION
  Report Type: Spontaneous
  Country: US (occurrence: US)
  Receive Date: 20210604
  Receipt Date: 20211025
  Transmission Date: 20220303
  Serious: No
  Sender: FDA-Public Use
  Company Number: US-SA-SAC20210518001195

PATIENT
  Age: 3 Week
  Sex: Male

DRUGS (12)
  1. ALPROLIX [Suspect]
     Active Substance: EFTRENONACOG ALFA
     Indication: Factor IX deficiency
     Dosage: 1480 IU, QW
     Route: 042
     Dates: start: 201912
  2. ALPROLIX [Suspect]
     Active Substance: EFTRENONACOG ALFA
     Indication: Factor IX deficiency
     Dosage: 1480 IU, QW
     Route: 042
     Dates: start: 201912
  3. ALPROLIX [Suspect]
     Active Substance: EFTRENONACOG ALFA
     Dosage: UNK
     Route: 042
  4. ALPROLIX [Suspect]
     Active Substance: EFTRENONACOG ALFA
     Dosage: UNK
     Route: 042
  5. ALPROLIX [Suspect]
     Active Substance: EFTRENONACOG ALFA
     Dosage: 234 IU, QD OR PRN
     Route: 042
     Dates: start: 20210514
  6. ALPROLIX [Suspect]
     Active Substance: EFTRENONACOG ALFA
     Dosage: 234 IU, QD OR PRN
     Route: 042
     Dates: start: 20210514
  7. ALPROLIX [Suspect]
     Active Substance: EFTRENONACOG ALFA
     Dosage: 534 IU, QD OR PRN
     Route: 042
     Dates: start: 20210514
  8. ALPROLIX [Suspect]
     Active Substance: EFTRENONACOG ALFA
     Dosage: 534 IU, QD OR PRN
     Route: 042
     Dates: start: 20210514
  9. ALPROLIX [Suspect]
     Active Substance: EFTRENONACOG ALFA
     Dosage: 1544 IU, QW
     Route: 042
     Dates: start: 20210724
  10. ALPROLIX [Suspect]
     Active Substance: EFTRENONACOG ALFA
     Dosage: 1544 IU, QW
     Route: 042
     Dates: start: 20210724
  11. ALPROLIX [Suspect]
     Active Substance: EFTRENONACOG ALFA
     Dosage: 1544 IU, QW AND AS NEEDED ROUTE
     Route: 042
     Dates: start: 20210821
  12. ALPROLIX [Suspect]
     Active Substance: EFTRENONACOG ALFA
     Dosage: 1544 IU, QW AND AS NEEDED ROUTE
     Route: 042
     Dates: start: 20210821

REACTIONS (6)
  - Limb injury [Unknown]
  - Lip injury [Unknown]
  - Fall [Unknown]
  - Joint injury [Unknown]
  - Joint swelling [Unknown]
  - Incorrect dose administered [Unknown]

NARRATIVE: CASE EVENT DATE: 20170428
